APPROVED DRUG PRODUCT: FEBUXOSTAT
Active Ingredient: FEBUXOSTAT
Strength: 80MG
Dosage Form/Route: TABLET;ORAL
Application: A213069 | Product #002 | TE Code: AB
Applicant: SUNSHINE LAKE PHARMA CO LTD
Approved: Jun 2, 2020 | RLD: No | RS: No | Type: RX